FAERS Safety Report 22312411 (Version 1)
Quarter: 2023Q2

REPORT INFORMATION
  Report Type: Report from Study
  Country: US (occurrence: US)
  Receive Date: 20230512
  Receipt Date: 20230512
  Transmission Date: 20230721
  Serious: Yes (Other)
  Sender: FDA-Public Use
  Company Number: US-REGENERON PHARMACEUTICALS, INC.-2023-064512

PATIENT
  Sex: Female

DRUGS (1)
  1. PRALUENT [Suspect]
     Active Substance: ALIROCUMAB
     Indication: Product used for unknown indication
     Dosage: 75 UNK, Q2W
     Route: 065

REACTIONS (4)
  - Cerebrovascular accident [Unknown]
  - Meniscus injury [Unknown]
  - Fall [Unknown]
  - Head injury [Unknown]
